FAERS Safety Report 22658701 (Version 1)
Quarter: 2023Q2

REPORT INFORMATION
  Report Type: Spontaneous
  Country: US (occurrence: US)
  Receive Date: 20230630
  Receipt Date: 20230630
  Transmission Date: 20230722
  Serious: Yes (Other)
  Sender: FDA-Public Use
  Company Number: US-MYLANLABS-2023M1069546

PATIENT
  Age: 61 Year
  Sex: Female

DRUGS (44)
  1. ESOMEPRAZOLE [Suspect]
     Active Substance: ESOMEPRAZOLE
     Indication: Gastrooesophageal reflux disease
     Dosage: 40 MILLIGRAM, BID
     Route: 048
  2. LEVOTHYROXINE [Suspect]
     Active Substance: LEVOTHYROXINE
     Indication: Hypothyroidism
     Dosage: 150 MICROGRAM, QD (EXCEPT EVERY SATURDAY)
     Route: 048
  3. LEVOTHYROXINE [Suspect]
     Active Substance: LEVOTHYROXINE
     Dosage: 175 MICROGRAM, QW (EVERY SATURDAY)
     Route: 048
  4. LEVOTHYROXINE [Suspect]
     Active Substance: LEVOTHYROXINE
     Dosage: 125 MICROGRAM, AM, 125MICROG EACH MORNING ON AN EMPTY STOMACH 30 MIN PRIOR TO BREAKFAST OR OTHER MED
     Route: 065
  5. INSULIN DEGLUDEC [Concomitant]
     Active Substance: INSULIN DEGLUDEC
     Indication: Diabetes mellitus
     Dosage: 40 INTERNATIONAL UNIT, QD
     Route: 058
  6. INSULIN DEGLUDEC [Concomitant]
     Active Substance: INSULIN DEGLUDEC
     Dosage: 50 INTERNATIONAL UNIT, QD (MAXIMUM DOSE)
     Route: 058
  7. INSULIN ASPART [Concomitant]
     Active Substance: INSULIN ASPART
     Indication: Diabetes mellitus
     Dosage: 10 INTERNATIONAL UNIT, QD (WITH MEALS)
     Route: 058
  8. INSULIN ASPART [Concomitant]
     Active Substance: INSULIN ASPART
     Dosage: 50 INTERNATIONAL UNIT, QD (MAXIMUM DOSE)
     Route: 058
  9. EMPAGLIFLOZIN [Concomitant]
     Active Substance: EMPAGLIFLOZIN
     Indication: Diabetes mellitus
     Dosage: 25 MILLIGRAM, QD
     Route: 048
  10. GLUCAGON [Concomitant]
     Active Substance: GLUCAGON
     Indication: Hypoglycaemia
     Dosage: UNK UNK, PRN (AS NECESSARY) PEN STRENGTH: 1 MG/0.2 ML
     Route: 058
  11. LISINOPRIL [Concomitant]
     Active Substance: LISINOPRIL
     Indication: Hypertension
     Dosage: 10 MILLIGRAM, QD (IN EVENING)
     Route: 048
  12. METOPROLOL SUCCINATE [Concomitant]
     Active Substance: METOPROLOL SUCCINATE
     Indication: Hypertension
     Dosage: 50 MILLIGRAM, QD
     Route: 048
  13. SPIRONOLACTONE [Concomitant]
     Active Substance: SPIRONOLACTONE
     Indication: Hypertension
     Dosage: 25 MILLIGRAM, QD (EVERY MORNING)
     Route: 048
  14. HYDROCHLOROTHIAZIDE [Concomitant]
     Active Substance: HYDROCHLOROTHIAZIDE
     Indication: Nephrolithiasis
     Dosage: 50 MILLIGRAM, QD
     Route: 048
  15. ATORVASTATIN [Concomitant]
     Active Substance: ATORVASTATIN
     Indication: Hyperlipidaemia
     Dosage: 80 MILLIGRAM, QD (IN EVENING)
     Route: 048
  16. CLOPIDOGREL [Concomitant]
     Active Substance: CLOPIDOGREL BISULFATE
     Indication: Antiplatelet therapy
     Dosage: 75 MILLIGRAM, QD
     Route: 048
  17. ALPRAZOLAM [Concomitant]
     Active Substance: ALPRAZOLAM
     Indication: Anxiety
     Dosage: 0.25 MILLIGRAM, BID, TWICE A DAY AS NEEDED
     Route: 048
  18. ALPRAZOLAM [Concomitant]
     Active Substance: ALPRAZOLAM
     Indication: Depression
  19. DULOXETINE [Concomitant]
     Active Substance: DULOXETINE
     Indication: Anxiety
     Dosage: 60 MILLIGRAM, QD, AT BEDTIME
     Route: 048
  20. DULOXETINE [Concomitant]
     Active Substance: DULOXETINE
     Indication: Depression
  21. CYCLOBENZAPRINE [Concomitant]
     Active Substance: CYCLOBENZAPRINE
     Indication: Arthralgia
     Dosage: 10 MILLIGRAM, TID, THREE TIME A DAY AS NEEDED
     Route: 048
  22. CYCLOBENZAPRINE [Concomitant]
     Active Substance: CYCLOBENZAPRINE
     Indication: Muscle spasms
     Dosage: UNK, THERAPY CONTINUED AT REDUCED DOSE
     Route: 048
  23. ACETAMINOPHEN\DIPHENHYDRAMINE HYDROCHLORIDE [Concomitant]
     Active Substance: ACETAMINOPHEN\DIPHENHYDRAMINE HYDROCHLORIDE
     Indication: Arthralgia
     Dosage: 2 DOSAGE FORM, QD, IN EVENING
     Route: 048
  24. ACETAMINOPHEN\DIPHENHYDRAMINE HYDROCHLORIDE [Concomitant]
     Active Substance: ACETAMINOPHEN\DIPHENHYDRAMINE HYDROCHLORIDE
     Indication: Muscle spasms
  25. METHOCARBAMOL [Concomitant]
     Active Substance: METHOCARBAMOL
     Indication: Arthralgia
     Dosage: 750 MILLIGRAM, Q6H, AS NEEDED
     Route: 048
  26. METHOCARBAMOL [Concomitant]
     Active Substance: METHOCARBAMOL
     Indication: Muscle spasms
  27. DICLOFENAC SODIUM [Concomitant]
     Active Substance: DICLOFENAC SODIUM
     Indication: Arthralgia
     Dosage: 4 GRAM, UP TO 4 TIMES A DAY AS NEEDED
     Route: 061
  28. NITROGLYCERIN [Concomitant]
     Active Substance: NITROGLYCERIN
     Indication: Angina pectoris
     Dosage: 0.4 MILLIGRAM, PRN (AS NECESSARY)
     Route: 060
  29. ALBUTEROL [Concomitant]
     Active Substance: ALBUTEROL
     Indication: Seasonal allergy
     Dosage: UNK, METERED DOSE INHALER; 2 INHALATIONS EVERY 4-6 HOURS AS NEEDED (RESPIRATORY (INHALATION))
     Route: 055
  30. CETIRIZINE [Concomitant]
     Active Substance: CETIRIZINE HYDROCHLORIDE
     Indication: Seasonal allergy
     Dosage: 10 MILLIGRAM, QD
     Route: 048
  31. FLUTICASONE PROPIONATE [Concomitant]
     Active Substance: FLUTICASONE PROPIONATE
     Indication: Seasonal allergy
     Dosage: 50 MICROGRAM, BID
     Route: 045
  32. SALINE [Concomitant]
     Active Substance: SODIUM CHLORIDE
     Indication: Seasonal allergy
     Dosage: UNK UNK, QD
     Route: 045
  33. EPINEPHRINE [Concomitant]
     Active Substance: EPINEPHRINE
     Indication: Seasonal allergy
     Dosage: UNK, EPINEPHRINE PEN STRENGTH: 0.3 MG/0.3 ML (AS NECESSARY)
     Route: 030
  34. ESTRADIOL [Concomitant]
     Active Substance: ESTRADIOL
     Indication: Menopausal symptoms
     Dosage: 1 MILLIGRAM, QD
     Route: 048
  35. ESTRADIOL [Concomitant]
     Active Substance: ESTRADIOL
     Indication: Atrophic vulvovaginitis
     Dosage: 10 MILLIGRAM, PRN, AS NECESSARY
     Route: 067
  36. PREMARIN [Concomitant]
     Active Substance: ESTROGENS, CONJUGATED
     Indication: Atrophic vulvovaginitis
     Dosage: UNK UNK, PRN, AS NECESSARY
     Route: 067
  37. TRIAMCINOLONE [Concomitant]
     Active Substance: TRIAMCINOLONE
     Indication: Dermatitis
     Dosage: UNK UNK, BID, AS NECESSARY
     Route: 061
  38. CALCIUM CITRATE [Concomitant]
     Active Substance: CALCIUM CITRATE
     Indication: Mineral supplementation
     Dosage: 600 MILLIGRAM, BID
     Route: 048
  39. DIETARY SUPPLEMENT [Concomitant]
     Active Substance: DIETARY SUPPLEMENT
     Indication: Supplementation therapy
     Dosage: UNK UNK, QD
     Route: 048
  40. VITAMIN D3 [Concomitant]
     Active Substance: CHOLECALCIFEROL
     Indication: Supplementation therapy
     Dosage: 2 DOSAGE FORM, QD
     Route: 048
  41. MAGNESIUM [Concomitant]
     Active Substance: MAGNESIUM
     Indication: Hypomagnesaemia
     Dosage: 400 MILLIGRAM, QD
     Route: 048
  42. POTASSIUM CHLORIDE [Concomitant]
     Active Substance: POTASSIUM CHLORIDE
     Indication: Supplementation therapy
     Dosage: 10 MILLIEQUIVALENT, BID
     Route: 048
  43. POTASSIUM CHLORIDE [Concomitant]
     Active Substance: POTASSIUM CHLORIDE
     Dosage: UNK, DOSE DECREASED
     Route: 048
  44. VITAMIN B12 [Concomitant]
     Active Substance: CYANOCOBALAMIN
     Indication: Supplementation therapy
     Dosage: 500 MILLIGRAM, QD
     Route: 048

REACTIONS (2)
  - Osteoporosis [Unknown]
  - Hyperthyroidism [Unknown]
